FAERS Safety Report 7388207-5 (Version None)
Quarter: 2011Q1

REPORT INFORMATION
  Report Type: 
  Country: None (occurrence: None)
  Receive Date: 20110324
  Receipt Date: 20110310
  Transmission Date: 20110831
  Serious: Yes (Hospitalization, Other)
  Sender: FDA-Public Use
  Company Number: 020843

PATIENT
  Sex: Female

DRUGS (9)
  1. METHOTREXATE [Concomitant]
  2. MELOXICAM [Concomitant]
  3. BONIVIVA [Concomitant]
  4. DOLQUINE [Concomitant]
  5. ACFOL [Concomitant]
  6. CERTOLIZUMAB PEGOL (CERTOLIZUMAB PEGOL) [Suspect]
     Indication: RHEUMATOID ARTHRITIS
     Dosage: 400,200  MG 1X2 WEEKS, DOSES AT 0-2-4 WEEKS, SUBCUTANEOUS
     Route: 058
     Dates: start: 20091117, end: 20091215
  7. CERTOLIZUMAB PEGOL (CERTOLIZUMAB PEGOL) [Suspect]
     Indication: RHEUMATOID ARTHRITIS
     Dosage: 400,200  MG 1X2 WEEKS, DOSES AT 0-2-4 WEEKS, SUBCUTANEOUS
     Route: 058
     Dates: start: 20091229, end: 20100126
  8. CERTOLIZUMAB PEGOL (CERTOLIZUMAB PEGOL) [Suspect]
     Indication: RHEUMATOID ARTHRITIS
     Dosage: 400,200  MG 1X2 WEEKS, DOSES AT 0-2-4 WEEKS, SUBCUTANEOUS
     Route: 058
     Dates: start: 20100824, end: 20100929
  9. COLECALCIFEROL [Concomitant]

REACTIONS (2)
  - CELLULITIS [None]
  - MYOSITIS [None]
